FAERS Safety Report 10191070 (Version 2)
Quarter: 2014Q2

REPORT INFORMATION
  Report Type: Spontaneous
  Country: US (occurrence: None)
  Receive Date: 20140521
  Receipt Date: 20140619
  Transmission Date: 20141212
  Serious: Yes (Other)
  Sender: FDA-Public Use
  Company Number: 2014-US-005982

PATIENT
  Age: 33 Year
  Sex: Female
  Weight: 74.8 kg

DRUGS (6)
  1. XYREM [Suspect]
     Indication: NARCOLEPSY
     Route: 048
     Dates: start: 200603, end: 2006
  2. XYREM [Suspect]
     Indication: SOMNOLENCE
     Route: 048
     Dates: start: 200603, end: 2006
  3. NUVIGIL (ARMODAFINIL) [Concomitant]
  4. RITALIN [Concomitant]
  5. KEPPRA (LEVETIRACETAM) [Concomitant]
  6. RIBOFLAVIN (RIBOFLAVIN) [Concomitant]

REACTIONS (5)
  - Multiple sclerosis [None]
  - Convulsion [None]
  - Unresponsive to stimuli [None]
  - Demyelination [None]
  - Upper respiratory tract infection [None]
